FAERS Safety Report 6225636-7 (Version None)
Quarter: 2009Q2

REPORT INFORMATION
  Report Type: 
  Country: None (occurrence: None)
  Receive Date: 20090612
  Receipt Date: 20090529
  Transmission Date: 20091009
  Serious: Yes (Other)
  Sender: FDA-Public Use
  Company Number: CA-RANBAXY-2009RR-24596

PATIENT
  Age: 15 Year
  Sex: Female

DRUGS (11)
  1. FLUOXETINE HCL [Suspect]
     Indication: ANOREXIA NERVOSA
     Dosage: 20 MG, QD
  2. FLUOXETINE HCL [Suspect]
     Dosage: 40 MG, UNK
  3. FLUOXETINE HCL [Suspect]
     Dosage: 60 MG, QD
  4. OLANZAPINE [Suspect]
     Indication: ANOREXIA NERVOSA
     Dosage: 5 MG, QD
  5. OLANZAPINE [Suspect]
     Dosage: 2.5 MG, QD
  6. RISPERIDONE [Suspect]
     Dosage: 0.25 MG, QD
  7. RISPERIDONE [Suspect]
     Dosage: 0.5 MG, QD
  8. RISPERIDONE [Suspect]
     Dosage: 0.75 MG, QD
  9. CLONAZEPAM [Concomitant]
  10. QUETIAPINE FUMARATE [Concomitant]
     Dosage: 25 MG, UNK
  11. QUETIAPINE FUMARATE [Concomitant]
     Dosage: 50 MG, QD

REACTIONS (2)
  - DRUG INTERACTION [None]
  - ELECTROCARDIOGRAM QT PROLONGED [None]
